FAERS Safety Report 5844073-8 (Version None)
Quarter: 2008Q3

REPORT INFORMATION
  Report Type: 
  Country: None (occurrence: None)
  Receive Date: 20080813
  Receipt Date: 20080804
  Transmission Date: 20090109
  Serious: Yes (Other)
  Sender: FDA-Public Use
  Company Number: AT-TEVA-175624ISR

PATIENT
  Age: 12 Year
  Sex: Female

DRUGS (2)
  1. ETOPOSIDE [Suspect]
     Indication: EWING'S SARCOMA
  2. IFOSFAMIDE [Suspect]
     Indication: MEDULLOBLASTOMA

REACTIONS (1)
  - LYMPHOHISTIOCYTOSIS [None]
